FAERS Safety Report 9491816 (Version 1)
Quarter: 2013Q3

REPORT INFORMATION
  Report Type: Spontaneous
  Country: JP (occurrence: JP)
  Receive Date: 20130830
  Receipt Date: 20130830
  Transmission Date: 20140515
  Serious: Yes (Other)
  Sender: FDA-Public Use
  Company Number: JP-SANOFI-AVENTIS-2013SA085540

PATIENT
  Age: 82 Year
  Sex: Female
  Weight: 44.9 kg

DRUGS (6)
  1. CEFOTAX [Suspect]
     Indication: BRAIN NEOPLASM
     Route: 041
     Dates: start: 20130321, end: 20130326
  2. CEFOTAX [Suspect]
     Indication: BRAIN NEOPLASM
     Route: 041
     Dates: start: 20130327, end: 20130416
  3. PHENOBAL [Suspect]
     Indication: CONVULSION PROPHYLAXIS
     Dosage: FORM: POWDER
     Route: 048
     Dates: start: 20130310, end: 20130419
  4. LEVETIRACETAM [Suspect]
     Indication: CONVULSION PROPHYLAXIS
     Route: 048
     Dates: start: 20130309, end: 20130419
  5. VICCILLIN [Suspect]
     Indication: BRAIN NEOPLASM
     Route: 041
     Dates: start: 20130321, end: 20130326
  6. VICCILLIN [Suspect]
     Indication: BRAIN NEOPLASM
     Route: 041
     Dates: start: 20130327, end: 20130416

REACTIONS (3)
  - Drug eruption [Recovering/Resolving]
  - Rash [Recovering/Resolving]
  - Erythema [Recovering/Resolving]
